FAERS Safety Report 9951665 (Version 1)
Quarter: 2014Q1

REPORT INFORMATION
  Report Type: Report from Study
  Country: US (occurrence: US)
  Receive Date: 20140304
  Receipt Date: 20140304
  Transmission Date: 20141002
  Serious: No
  Sender: FDA-Public Use
  Company Number: US-ABBVIE-13P-163-1071808-00

PATIENT
  Age: 39 Year
  Sex: Female

DRUGS (6)
  1. HUMIRA [Suspect]
     Indication: CROHN^S DISEASE
     Dates: start: 20130225, end: 20130311
  2. HUMIRA [Suspect]
     Dates: start: 20130311, end: 20130325
  3. HUMIRA [Suspect]
     Dates: start: 20130325
  4. IMURAN [Concomitant]
     Indication: CROHN^S DISEASE
  5. PREDNISONE [Concomitant]
     Indication: CROHN^S DISEASE
  6. PREDNISONE [Concomitant]

REACTIONS (4)
  - Musculoskeletal chest pain [Not Recovered/Not Resolved]
  - Oropharyngeal pain [Not Recovered/Not Resolved]
  - Upper-airway cough syndrome [Not Recovered/Not Resolved]
  - Injection site pain [Not Recovered/Not Resolved]
